FAERS Safety Report 25922485 (Version 1)
Quarter: 2025Q4

REPORT INFORMATION
  Report Type: Spontaneous
  Country: EU (occurrence: EU)
  Receive Date: 20251015
  Receipt Date: 20251015
  Transmission Date: 20260117
  Serious: Yes (Other)
  Sender: ALEXION PHARMACEUTICALS
  Company Number: None

PATIENT
  Age: 56 Year
  Sex: Male

DRUGS (2)
  1. BUDESONIDE [Suspect]
     Active Substance: BUDESONIDE
     Indication: Product used for unknown indication
     Dosage: DOSAGE: UNKNOWNSTRENGTH: UNKNOWN
     Route: 065
  2. BRICANYL [Suspect]
     Active Substance: TERBUTALINE SULFATE
     Indication: Product used for unknown indication
     Dosage: DOSAGE: UNKNOWNSTRENGTH: UNKNOWN
     Route: 065

REACTIONS (3)
  - Tooth injury [Unknown]
  - Reynold^s syndrome [Unknown]
  - Polyneuropathy [Unknown]
